FAERS Safety Report 9549754 (Version 2)
Quarter: 2013Q3

REPORT INFORMATION
  Report Type: Spontaneous
  Country: US (occurrence: US)
  Receive Date: 20130924
  Receipt Date: 20130924
  Transmission Date: 20140515
  Serious: No
  Sender: FDA-Public Use
  Company Number: US-ALLERGAN-1310442US

PATIENT
  Age: 85 Year
  Sex: Female

DRUGS (2)
  1. LUMIGAN 0.01% [Suspect]
     Indication: GLAUCOMA
     Dosage: 2 GTT, UNK
     Route: 047
     Dates: start: 20130619
  2. DORZOLAMIDE [Suspect]
     Indication: GLAUCOMA

REACTIONS (4)
  - Asthma [Recovered/Resolved]
  - Dry throat [Not Recovered/Not Resolved]
  - Throat irritation [Unknown]
  - Dry eye [Recovering/Resolving]
